FAERS Safety Report 11636651 (Version 1)
Quarter: 2015Q4

REPORT INFORMATION
  Report Type: Spontaneous
  Country: CA (occurrence: CA)
  Receive Date: 20151016
  Receipt Date: 20151016
  Transmission Date: 20160304
  Serious: Yes (Death)
  Sender: FDA-Public Use
  Company Number: CA-ACTAVIS-2015-22131

PATIENT
  Age: 39 Year
  Sex: Female

DRUGS (8)
  1. ZANAMIVIR [Suspect]
     Active Substance: ZANAMIVIR
     Dosage: 600 MG, BID
     Route: 042
  2. ZANAMIVIR [Suspect]
     Active Substance: ZANAMIVIR
     Indication: INFLUENZA
     Dosage: 10 MG, BID
     Route: 055
  3. CYCLOSPORINE (UNKNOWN) [Suspect]
     Active Substance: CYCLOSPORINE
     Indication: ACUTE LYMPHOCYTIC LEUKAEMIA
     Dosage: UNK
     Route: 065
  4. ALEMTUZUMAB [Suspect]
     Active Substance: ALEMTUZUMAB
     Indication: PRODUCT USED FOR UNKNOWN INDICATION
     Dosage: UNK
     Route: 065
  5. OSELTAMIVIR (UNKNOWN) [Suspect]
     Active Substance: OSELTAMIVIR
     Indication: INFLUENZA
     Dosage: 75 MG, BID
     Route: 048
  6. METHYLPREDNISOLONE (WATSON LABORATORIES) [Suspect]
     Active Substance: METHYLPREDNISOLONE
     Indication: PRODUCT USED FOR UNKNOWN INDICATION
     Dosage: 2 MG/KG, DAILY
     Route: 042
  7. MYCOPHENOLATE MOFETIL (UNKNOWN) [Suspect]
     Active Substance: MYCOPHENOLATE MOFETIL
     Indication: ACUTE LYMPHOCYTIC LEUKAEMIA
     Dosage: UNK
     Route: 065
  8. OSELTAMIVIR (UNKNOWN) [Suspect]
     Active Substance: OSELTAMIVIR
     Dosage: 150 MG, BID
     Route: 048

REACTIONS (9)
  - Graft versus host disease [Fatal]
  - Influenza [Fatal]
  - Cytomegalovirus infection [Fatal]
  - Cystitis haemorrhagic [Fatal]
  - Pseudomonas infection [Fatal]
  - Pathogen resistance [Fatal]
  - Legionella infection [Fatal]
  - Respiratory depression [Fatal]
  - Drug ineffective [Fatal]

NARRATIVE: CASE EVENT DATE: 201211
